FAERS Safety Report 9052073 (Version 1)
Quarter: 2013Q1

REPORT INFORMATION
  Report Type: Spontaneous
  Country: US (occurrence: None)
  Receive Date: 20130131
  Receipt Date: 20130131
  Transmission Date: 20140127
  Serious: Yes (Hospitalization)
  Sender: FDA-Public Use
  Company Number: None

PATIENT
  Age: 92 Year
  Sex: Female
  Weight: 67.8 kg

DRUGS (11)
  1. LANTUS [Suspect]
     Dosage: CHRONIC
  2. NOVOLOG [Suspect]
     Dosage: CHRONIC
  3. ATIVAN [Concomitant]
  4. OLANZAPINE [Concomitant]
  5. APAF [Concomitant]
  6. PHENADOZ [Concomitant]
  7. CLONIDINE [Concomitant]
  8. GALANTAMINE [Concomitant]
  9. LOPERAMIDE [Concomitant]
  10. MOM [Concomitant]
  11. ATROPINE [Concomitant]

REACTIONS (1)
  - Hypoglycaemia [None]
